FAERS Safety Report 9604026 (Version 1)
Quarter: 2013Q4

REPORT INFORMATION
  Report Type: Other
  Country: JP (occurrence: JP)
  Receive Date: 20131008
  Receipt Date: 20131008
  Transmission Date: 20140711
  Serious: Yes (Death, Hospitalization)
  Sender: FDA-Public Use
  Company Number: JP-ACTELION-A-CH2013-89085

PATIENT
  Age: 75 Year
  Sex: 0

DRUGS (4)
  1. TRACLEER [Suspect]
     Indication: PULMONARY ARTERIAL HYPERTENSION
     Dosage: 62.5 MG, BID
     Route: 048
     Dates: start: 2009
  2. BERAPROST [Concomitant]
     Dosage: 120 ?G, OD
     Dates: start: 2009
  3. OXYGEN [Concomitant]
  4. WARFARIN [Concomitant]

REACTIONS (3)
  - Pulmonary arterial hypertension [Fatal]
  - Interstitial lung disease [Fatal]
  - Cardiac failure [Not Recovered/Not Resolved]
